FAERS Safety Report 5779473-8 (Version None)
Quarter: 2008Q2

REPORT INFORMATION
  Report Type: 
  Country: None (occurrence: None)
  Receive Date: 20080601
  Receipt Date: 20080324
  Transmission Date: 20081010
  Serious: No
  Sender: FDA-Public Use
  Company Number: US200803005633

PATIENT
  Age: 54 Year
  Sex: Female
  Weight: 124.7 kg

DRUGS (3)
  1. BYETTA [Suspect]
     Indication: DIABETES MELLITUS
     Dosage: 5 UG, 2/D, SUBCUTANEOUS; 10 UG, 2/D, SUBCUTANEOUS
     Route: 058
     Dates: start: 20080121, end: 20080309
  2. BYETTA [Suspect]
     Indication: DIABETES MELLITUS
     Dosage: 5 UG, 2/D, SUBCUTANEOUS; 10 UG, 2/D, SUBCUTANEOUS
     Route: 058
     Dates: start: 20080310
  3. STARLIX [Concomitant]

REACTIONS (4)
  - BLOOD GLUCOSE INCREASED [None]
  - HEADACHE [None]
  - SINUS CONGESTION [None]
  - SINUSITIS [None]
